FAERS Safety Report 15704028 (Version 1)
Quarter: 2018Q4

REPORT INFORMATION
  Report Type: Spontaneous
  Country: GB (occurrence: GB)
  Receive Date: 20181210
  Receipt Date: 20181210
  Transmission Date: 20190205
  Serious: Yes (Death, Hospitalization, Other)
  Sender: FDA-Public Use
  Company Number: GB-TEVA-280506ISR

PATIENT
  Age: 19 Year
  Sex: Female

DRUGS (5)
  1. OMEPRAZOLE. [Suspect]
     Active Substance: OMEPRAZOLE
     Indication: ILL-DEFINED DISORDER
     Route: 065
  2. AMOXICILLIN. [Suspect]
     Active Substance: AMOXICILLIN
     Indication: EAR INFECTION
     Route: 065
  3. SILDENAFIL. [Interacting]
     Active Substance: SILDENAFIL
     Dosage: 150 MILLIGRAM DAILY;
  4. SITAXENTAN [Interacting]
     Active Substance: SITAXENTAN
     Indication: PULMONARY ARTERIAL HYPERTENSION
     Dosage: 100 MILLIGRAM DAILY;
     Route: 065
  5. DOMPERIDONE [Interacting]
     Active Substance: DOMPERIDONE
     Route: 065

REACTIONS (4)
  - Acute hepatic failure [Fatal]
  - Drug interaction [Unknown]
  - Brain oedema [Not Recovered/Not Resolved]
  - Hepatic necrosis [Not Recovered/Not Resolved]
